FAERS Safety Report 5219104-9 (Version None)
Quarter: 2007Q1

REPORT INFORMATION
  Report Type: 
  Country: None (occurrence: None)
  Receive Date: 20070123
  Receipt Date: 20060426
  Transmission Date: 20070707
  Serious: Yes (Hospitalization)
  Sender: FDA-Public Use
  Company Number: 2006VX000266

PATIENT
  Age: 41 Year
  Sex: Female

DRUGS (2)
  1. INTERFERON ALFACON-1 [Suspect]
     Indication: HEPATITIS C
     Dosage: SEE IMAGE
     Route: 058
     Dates: start: 20060215
  2. RIBAVIRIN [Concomitant]

REACTIONS (9)
  - CATHETER SITE HAEMORRHAGE [None]
  - DIALYSIS [None]
  - DIARRHOEA [None]
  - FATIGUE [None]
  - KIDNEY SMALL [None]
  - PYREXIA [None]
  - STOMACH DISCOMFORT [None]
  - VOMITING [None]
  - WEIGHT DECREASED [None]
